FAERS Safety Report 8538875-7 (Version None)
Quarter: 2012Q3

REPORT INFORMATION
  Report Type: 
  Country: None (occurrence: None)
  Receive Date: 20120726
  Receipt Date: 20120718
  Transmission Date: 20120928
  Serious: Yes (Other)
  Sender: FDA-Public Use
  Company Number: US-AMGEN-USASP2011034877

PATIENT
  Age: 48 Year
  Sex: Male
  Weight: 84.082 kg

DRUGS (3)
  1. ENBREL [Suspect]
     Indication: ANKYLOSING SPONDYLITIS
     Dosage: 50 MG, QWK
     Route: 058
     Dates: start: 20110708, end: 20110727
  2. ZOLMITRIPTAN [Concomitant]
     Indication: MIGRAINE
     Dosage: UNK
     Route: 048
  3. PREDNISONE [Concomitant]
     Indication: ANKYLOSING SPONDYLITIS
     Dosage: 10 MG, UNK
     Route: 048

REACTIONS (5)
  - INJECTION SITE PAIN [None]
  - INJECTION SITE ERYTHEMA [None]
  - CHOLECYSTITIS [None]
  - INJECTION SITE EXTRAVASATION [None]
  - INJECTION SITE REACTION [None]
